FAERS Safety Report 7130769-7 (Version None)
Quarter: 2010Q4

REPORT INFORMATION
  Report Type: 
  Country: None (occurrence: None)
  Receive Date: 20101201
  Receipt Date: 20101116
  Transmission Date: 20110411
  Serious: Yes (Hospitalization)
  Sender: FDA-Public Use
  Company Number: PHHY2010IL77669

PATIENT
  Age: 28 Year
  Sex: Male

DRUGS (1)
  1. EVEROLIMUS [Suspect]
     Dosage: 10 MG, QD
     Route: 048

REACTIONS (3)
  - BLOOD CREATINE PHOSPHOKINASE INCREASED [None]
  - HYPERTENSION [None]
  - OEDEMA PERIPHERAL [None]
